FAERS Safety Report 11119008 (Version 1)
Quarter: 2015Q2

REPORT INFORMATION
  Report Type: Spontaneous
  Country: US (occurrence: None)
  Receive Date: 20150515
  Receipt Date: 20150515
  Transmission Date: 20150821
  Serious: Yes (Disabling)
  Sender: FDA-Public Use
  Company Number: None

PATIENT
  Age: 54 Year
  Sex: Female
  Weight: 80.29 kg

DRUGS (1)
  1. PROACTIV EXTRA STRENGTH FORMULA CLEANSER [Suspect]
     Active Substance: BENZOYL PEROXIDE
     Indication: THERAPEUTIC SKIN CARE TOPICAL
     Dates: start: 20150301, end: 20150413

REACTIONS (2)
  - Drug hypersensitivity [None]
  - Expired product administered [None]

NARRATIVE: CASE EVENT DATE: 20150324
